FAERS Safety Report 10193204 (Version 2)
Quarter: 2018Q2

REPORT INFORMATION
  Report Type: Spontaneous
  Country: US (occurrence: US)
  Receive Date: 20140524
  Receipt Date: 20180517
  Transmission Date: 20180711
  Serious: No
  Sender: FDA-Public Use
  Company Number: US-SA-2013SA110915

PATIENT
  Age: 74 Year
  Sex: Female
  Weight: 99.7 kg

DRUGS (8)
  1. LANTUS SOLOSTAR [Suspect]
     Active Substance: INSULIN GLARGINE
     Indication: TYPE 2 DIABETES MELLITUS
     Dosage: DOSE:37 UNIT(S)
     Route: 051
  2. GLIMEPIRIDE. [Suspect]
     Active Substance: GLIMEPIRIDE
     Route: 065
  3. SOLOSTAR [Concomitant]
     Active Substance: DEVICE
     Dosage: DOSE:20 UNIT(S)
  4. VICTOZA [Suspect]
     Active Substance: LIRAGLUTIDE
     Route: 065
  5. ZANTAC [Concomitant]
     Active Substance: RANITIDINE HYDROCHLORIDE
     Indication: GASTROOESOPHAGEAL REFLUX DISEASE
     Route: 065
  6. LANTUS SOLOSTAR [Suspect]
     Active Substance: INSULIN GLARGINE
     Indication: TYPE 2 DIABETES MELLITUS
     Dosage: START - THIS MORNING DOSE:20 UNIT(S)
     Route: 051
  7. LANTUS SOLOSTAR [Suspect]
     Active Substance: INSULIN GLARGINE
     Indication: TYPE 2 DIABETES MELLITUS
     Dosage: DOSE:37 UNIT(S)
     Route: 051
  8. LANTUS SOLOSTAR [Suspect]
     Active Substance: INSULIN GLARGINE
     Indication: TYPE 2 DIABETES MELLITUS
     Dosage: START - THIS MORNING DOSE:50 UNIT(S)
     Route: 051
     Dates: start: 2012

REACTIONS (5)
  - Abdominal discomfort [Unknown]
  - Condition aggravated [Unknown]
  - Bronchial disorder [Unknown]
  - Glycosylated haemoglobin increased [Unknown]
  - Blood glucose increased [Unknown]
